FAERS Safety Report 11031816 (Version 1)
Quarter: 2015Q2

REPORT INFORMATION
  Report Type: Spontaneous
  Country: US (occurrence: US)
  Receive Date: 20150415
  Receipt Date: 20150415
  Transmission Date: 20150821
  Serious: No
  Sender: FDA-Public Use
  Company Number: US-BAYER-2015-073378

PATIENT
  Age: 48 Year
  Sex: Female

DRUGS (1)
  1. CLIMARA PRO [Suspect]
     Active Substance: ESTRADIOL\LEVONORGESTREL
     Indication: HORMONE REPLACEMENT THERAPY
     Dosage: UNK, OW
     Route: 062
     Dates: start: 20150321, end: 201503

REACTIONS (3)
  - Skin irritation [Not Recovered/Not Resolved]
  - Product adhesion issue [None]
  - Flushing [None]

NARRATIVE: CASE EVENT DATE: 201503
